FAERS Safety Report 22294785 (Version 1)
Quarter: 2023Q2

REPORT INFORMATION
  Report Type: Spontaneous
  Country: US (occurrence: US)
  Receive Date: 20230508
  Receipt Date: 20230508
  Transmission Date: 20230721
  Serious: Yes (Hospitalization, Other)
  Sender: FDA-Public Use
  Company Number: US-BRISTOL-MYERS SQUIBB COMPANY-2023-062380

PATIENT
  Age: 62 Year
  Sex: Female
  Weight: 67.4 kg

DRUGS (9)
  1. REVLIMID [Interacting]
     Active Substance: LENALIDOMIDE
     Indication: Myelodysplastic syndrome
     Dosage: TAKE 1 CAPSULE BY MOUTH ONCE DAILY.
     Route: 048
     Dates: start: 20170705
  2. FLUCONAZOLE [Interacting]
     Active Substance: FLUCONAZOLE
     Indication: Product used for unknown indication
     Dosage: TAKE 2 TABLET DAILY.
     Route: 048
     Dates: start: 20221122
  3. ASPIRIN [Concomitant]
     Active Substance: ASPIRIN
     Indication: Product used for unknown indication
     Route: 048
     Dates: start: 201706
  4. ASPIRIN [Concomitant]
     Active Substance: ASPIRIN
     Route: 048
     Dates: start: 20220816
  5. AMITRIPTYLINE HYDROCHLORIDE [Concomitant]
     Active Substance: AMITRIPTYLINE HYDROCHLORIDE
     Indication: Product used for unknown indication
     Dosage: TAKE 2 TABLET BY MOUTH AT BEDTIME.
     Route: 048
     Dates: start: 20180319
  6. VITAMIN B12 [Concomitant]
     Active Substance: CYANOCOBALAMIN
     Indication: Product used for unknown indication
     Dosage: TAKE TWO TABLET PO QDAY.
     Route: 048
     Dates: start: 20221006
  7. POTASSIUM CHLORIDE [Concomitant]
     Active Substance: POTASSIUM CHLORIDE
     Indication: Product used for unknown indication
     Dosage: TAKE 2 TABLET EVERY 12 HOURS.
     Route: 048
     Dates: start: 20221214
  8. OXYBUTYNIN CHLORIDE [Concomitant]
     Active Substance: OXYBUTYNIN CHLORIDE
     Indication: Product used for unknown indication
     Dosage: 5 MG ORAL TABLET EXTENDED RELEASE 24 HOUR TAKE 5 MG ONCE DAILY.
     Route: 048
     Dates: start: 20230117
  9. BENZONATATE [Concomitant]
     Active Substance: BENZONATATE
     Indication: Product used for unknown indication
     Dosage: 1 CAPSULE 3 TIMES DAILY AS NEEDED.
     Route: 048
     Dates: start: 20221006

REACTIONS (6)
  - Meningitis cryptococcal [Unknown]
  - Pneumonia [Unknown]
  - Diplopia [Unknown]
  - Hallucination [Unknown]
  - Anaemia [Unknown]
  - Drug interaction [Unknown]

NARRATIVE: CASE EVENT DATE: 20220817
